FAERS Safety Report 10686853 (Version 1)
Quarter: 2015Q1

REPORT INFORMATION
  Report Type: Spontaneous
  Country: US (occurrence: US)
  Receive Date: 20150102
  Receipt Date: 20150102
  Transmission Date: 20150720
  Serious: No
  Sender: FDA-Public Use
  Company Number: US-ASTRAZENECA-2014SE97674

PATIENT
  Sex: Female

DRUGS (9)
  1. VENTOLIN HFA [Concomitant]
     Active Substance: ALBUTEROL SULFATE
  2. POTASSIUM CHLORIDE ER [Concomitant]
     Active Substance: POTASSIUM CHLORIDE
  3. PANTOPRAZOLE SODIUM DELAYED RELEASE [Concomitant]
     Active Substance: PANTOPRAZOLE SODIUM
  4. FUROSEEMIDE [Concomitant]
  5. ATENOLOL. [Suspect]
     Active Substance: ATENOLOL
     Route: 048
  6. GAPAPENTIN [Concomitant]
  7. MELOXICAM. [Concomitant]
     Active Substance: MELOXICAM
  8. VENLAFAXINE HCL ER EXTENDED 24 24 HOUR RELEASE [Concomitant]
  9. NITROSTAT [Concomitant]
     Active Substance: NITROGLYCERIN
     Route: 060

REACTIONS (2)
  - Adverse event [Unknown]
  - Pain [Unknown]
